FAERS Safety Report 6100090-4 (Version None)
Quarter: 2009Q1

REPORT INFORMATION
  Report Type: 
  Country: None (occurrence: None)
  Receive Date: 20090303
  Receipt Date: 20090302
  Transmission Date: 20090719
  Serious: Yes (Hospitalization)
  Sender: FDA-Public Use
  Company Number: B0562525A

PATIENT
  Age: 37 Year
  Sex: Male

DRUGS (1)
  1. AUGMENTIN '125' [Suspect]
     Dosage: 2G PER DAY
     Route: 048
     Dates: start: 20090224, end: 20090224

REACTIONS (3)
  - ERYTHEMA [None]
  - PRURITUS [None]
  - RASH PAPULAR [None]
